FAERS Safety Report 21697598 (Version 1)
Quarter: 2022Q4

REPORT INFORMATION
  Report Type: Report from Study
  Country: CN (occurrence: CN)
  Receive Date: 20221208
  Receipt Date: 20221208
  Transmission Date: 20230112
  Serious: Yes (Other)
  Sender: FDA-Public Use
  Company Number: CN-SUN PHARMACEUTICAL INDUSTRIES LTD-2022R1-367743

PATIENT
  Age: 12 Year

DRUGS (4)
  1. AMLODIPINE [Suspect]
     Active Substance: AMLODIPINE BESYLATE
     Indication: Pulmonary arterial hypertension
     Dosage: UNK
     Route: 048
  2. AMLODIPINE [Suspect]
     Active Substance: AMLODIPINE BESYLATE
     Indication: Heritable pulmonary arterial hypertension
  3. DILTIAZEM [Suspect]
     Active Substance: DILTIAZEM
     Indication: Heritable pulmonary arterial hypertension
     Dosage: UNK
     Route: 048
  4. DILTIAZEM [Suspect]
     Active Substance: DILTIAZEM
     Indication: Pulmonary arterial hypertension

REACTIONS (2)
  - Gingival hypertrophy [Unknown]
  - Sinus bradycardia [Unknown]
